FAERS Safety Report 8009415-6 (Version None)
Quarter: 2011Q4

REPORT INFORMATION
  Report Type: 
  Country: None (occurrence: None)
  Receive Date: 20111227
  Receipt Date: 20111220
  Transmission Date: 20120403
  Serious: Yes (Death, Hospitalization)
  Sender: FDA-Public Use
  Company Number: JP-SANOFI-AVENTIS-2011SA065753

PATIENT
  Age: 71 Year
  Sex: Male
  Weight: 40 kg

DRUGS (6)
  1. OXALIPLATIN [Suspect]
     Indication: RECTAL CANCER
     Dosage: ROUTE: DRCYCLE: 1-4
     Route: 041
     Dates: start: 20100622, end: 20100810
  2. SEROTONE [Concomitant]
     Indication: PREMEDICATION
     Route: 041
     Dates: start: 20100622, end: 20100810
  3. LEVOLEUCOVORIN CALCIUM [Concomitant]
     Indication: RECTAL CANCER
     Dosage: ROUTE: DR
     Route: 041
     Dates: start: 20100622, end: 20100810
  4. FLUOROURACIL [Suspect]
     Indication: RECTAL CANCER
     Dosage: CYCLES: 1-4
     Route: 040
     Dates: start: 20100622, end: 20100810
  5. FLUOROURACIL [Suspect]
     Dosage: FORM: CONTINOUS INFUSION, CYCLES: 1-4
     Route: 041
     Dates: start: 20100622, end: 20100810
  6. DEXAMETHASONE SODIUM PHOSPHATE [Concomitant]
     Indication: PREMEDICATION
     Route: 041
     Dates: start: 20100622, end: 20100810

REACTIONS (3)
  - NEUTROPHIL COUNT DECREASED [None]
  - PLATELET COUNT DECREASED [None]
  - NECROTISING FASCIITIS [None]
